FAERS Safety Report 15267503 (Version 3)
Quarter: 2018Q3

REPORT INFORMATION
  Report Type: Report from Study
  Country: US (occurrence: US)
  Receive Date: 20180811
  Receipt Date: 20180911
  Transmission Date: 20181010
  Serious: Yes (Hospitalization)
  Sender: FDA-Public Use
  Company Number: US-AMGEN-USASP2018110507

PATIENT
  Age: 60 Year
  Sex: Female
  Weight: 88.89 kg

DRUGS (3)
  1. BUPIVACAINE. [Concomitant]
     Active Substance: BUPIVACAINE
     Indication: OCCIPITAL NEURALGIA
  2. AIMOVIG [Suspect]
     Active Substance: ERENUMAB-AOOE
     Indication: MIGRAINE
     Dosage: 140 MG, QMO
     Route: 058
     Dates: start: 20180711
  3. BUPIVACAINE. [Concomitant]
     Active Substance: BUPIVACAINE
     Indication: MUSCLE SPASMS

REACTIONS (9)
  - Urinary tract infection [Recovered/Resolved]
  - Constipation [Unknown]
  - Nervousness [Unknown]
  - Urticaria [Unknown]
  - Colitis [Recovered/Resolved]
  - Pruritus generalised [Unknown]
  - Muscle spasms [Unknown]
  - Injection site pruritus [Unknown]
  - Injection site bruising [Unknown]

NARRATIVE: CASE EVENT DATE: 201807
